FAERS Safety Report 7687036-2 (Version None)
Quarter: 2011Q3

REPORT INFORMATION
  Report Type: 
  Country: None (occurrence: None)
  Receive Date: 20110816
  Receipt Date: 20110811
  Transmission Date: 20111222
  Serious: Yes (Death, Life-Threatening, Hospitalization)
  Sender: FDA-Public Use
  Company Number: US-BRISTOL-MYERS SQUIBB COMPANY-15956675

PATIENT
  Age: 51 Year
  Sex: Male

DRUGS (1)
  1. ERBITUX [Suspect]
     Indication: NON-SMALL CELL LUNG CANCER
     Dosage: LOADING DOSE: 875MG
     Route: 042
     Dates: start: 20110309, end: 20110706

REACTIONS (5)
  - HAEMOPTYSIS [None]
  - DYSPNOEA [None]
  - HYPOXIA [None]
  - PNEUMOTHORAX [None]
  - BRONCHIAL NEOPLASM [None]
